FAERS Safety Report 6711687-2 (Version None)
Quarter: 2010Q2

REPORT INFORMATION
  Report Type: 
  Country: None (occurrence: None)
  Receive Date: 20100505
  Receipt Date: 20100427
  Transmission Date: 20101027
  Serious: Yes (Other)
  Sender: FDA-Public Use
  Company Number: B0642737A

PATIENT
  Sex: Male

DRUGS (4)
  1. NIQUITIN CQ 2MG LOZENGE [Suspect]
     Indication: DRUG USE FOR UNKNOWN INDICATION
     Dosage: 4LOZ PER DAY
     Route: 002
     Dates: start: 20080101
  2. TRAMADOL [Concomitant]
  3. MIRTAZAPINE [Concomitant]
  4. UNSPECIFIED PATCH [Concomitant]

REACTIONS (3)
  - DEPENDENCE [None]
  - DRUG ADMINISTRATION ERROR [None]
  - INTENTIONAL DRUG MISUSE [None]
